FAERS Safety Report 21189788 (Version 1)
Quarter: 2022Q3

REPORT INFORMATION
  Report Type: Spontaneous
  Country: US (occurrence: None)
  Receive Date: 20220808
  Receipt Date: 20220808
  Transmission Date: 20221027
  Serious: Yes (Death)
  Sender: FDA-Public Use
  Company Number: None

PATIENT
  Age: 71 Year
  Sex: Male
  Weight: 93.1 kg

DRUGS (1)
  1. PACRITINIB [Suspect]
     Active Substance: PACRITINIB
     Indication: Myelodysplastic syndrome
     Dosage: FREQUENCY : DAILY;?
     Route: 048
     Dates: start: 20220602, end: 20220722

REACTIONS (5)
  - Haemoglobin decreased [None]
  - Platelet count decreased [None]
  - Hemiparesis [None]
  - Haemorrhage [None]
  - Mental status changes [None]
